FAERS Safety Report 22195331 (Version 2)
Quarter: 2023Q2

REPORT INFORMATION
  Report Type: Other
  Country: US (occurrence: None)
  Receive Date: 20230411
  Receipt Date: 20230608
  Transmission Date: 20230722
  Serious: Yes (Hospitalization)
  Sender: FDA-Public Use
  Company Number: US-ROCHE-3323748

PATIENT
  Age: 52 Year
  Sex: Male
  Weight: 81.266 kg

DRUGS (8)
  1. OCREVUS [Suspect]
     Active Substance: OCRELIZUMAB
     Indication: Relapsing-remitting multiple sclerosis
     Dosage: DAY 1 AND DAY 15, SUBSEQUENT DOSE: 600 MG EVERY 6 MONTHS THEREAFTER, DATE OF TREATMENT: 04/NOV/2022,
     Route: 042
     Dates: start: 2021
  2. OCREVUS [Suspect]
     Active Substance: OCRELIZUMAB
     Indication: Relapsing multiple sclerosis
  3. TOPIRAMATE [Concomitant]
     Active Substance: TOPIRAMATE
     Dosage: TAKE 1 CAPSULE 25 MG BY MOUTH DAILY
  4. LORAZEPAM [Concomitant]
     Active Substance: LORAZEPAM
     Dosage: TAKE 1 TABLET PO 45 MINUTES PRIOR TO MRI 1 MG TABLET
  5. TRIAMCINOLONE [Concomitant]
     Active Substance: TRIAMCINOLONE
     Dosage: APPLY TOPICALLY 2 TIMES DAILY
  6. HYDROXYZINE [Concomitant]
     Active Substance: HYDROXYZINE HYDROCHLORIDE
     Dosage: TAKE 1 TABLET BY MOUTH 3 TIMES DAILY AS NEEDED 25 MG
  7. HYPROMELLOSE;NAPHAZOLINE HYDROCHLORIDE [Concomitant]
     Dosage: APPLY TO EYE AS NEEDED
  8. IBUPROFEN [Concomitant]
     Active Substance: IBUPROFEN
     Dosage: TAKE 200 MG BY MOUTH EVERY 6 HOURS AS NEEDED

REACTIONS (3)
  - Band sensation [Unknown]
  - COVID-19 [Unknown]
  - Stress [Unknown]

NARRATIVE: CASE EVENT DATE: 20230201
